FAERS Safety Report 6486254-9 (Version None)
Quarter: 2009Q4

REPORT INFORMATION
  Report Type: 
  Country: None (occurrence: None)
  Receive Date: 20091209
  Receipt Date: 20090814
  Transmission Date: 20100525
  Serious: No
  Sender: FDA-Public Use
  Company Number: US-AMGEN-KDL357449

PATIENT
  Sex: Female

DRUGS (2)
  1. ENBREL [Suspect]
     Indication: RHEUMATOID ARTHRITIS
     Route: 058
     Dates: start: 20090116
  2. METHOTREXATE [Concomitant]
     Dates: start: 20090129

REACTIONS (19)
  - ARTHRALGIA [None]
  - CHILLS [None]
  - DECREASED APPETITE [None]
  - DRY SKIN [None]
  - DYSPHONIA [None]
  - FATIGUE [None]
  - GLOSSODYNIA [None]
  - HEADACHE [None]
  - HUMAN BITE [None]
  - INJECTION SITE PAIN [None]
  - NAUSEA [None]
  - OPEN WOUND [None]
  - ORAL CANDIDIASIS [None]
  - ORAL DISCOMFORT [None]
  - PALLOR [None]
  - PYREXIA [None]
  - SKIN FISSURES [None]
  - TONGUE BLISTERING [None]
  - VAGINAL ODOUR [None]
